FAERS Safety Report 16208514 (Version 1)
Quarter: 2019Q2

REPORT INFORMATION
  Report Type: Spontaneous
  Country: DE (occurrence: DE)
  Receive Date: 20190417
  Receipt Date: 20190417
  Transmission Date: 20190711
  Serious: Yes (Death, Congenital Anomaly)
  Sender: FDA-Public Use
  Company Number: DE-ELI_LILLY_AND_COMPANY-DE201904007504

PATIENT
  Sex: Female

DRUGS (6)
  1. CYMBALTA [Suspect]
     Active Substance: DULOXETINE HYDROCHLORIDE
     Indication: ANXIETY DISORDER
     Dosage: 60 MG, DAILY
     Route: 064
  2. CYMBALTA [Suspect]
     Active Substance: DULOXETINE HYDROCHLORIDE
     Indication: ANXIETY DISORDER
     Dosage: 60 MG, DAILY
     Route: 064
  3. L-THYROXIN [LEVOTHYROXINE SODIUM] [Concomitant]
     Indication: HYPOTHYROIDISM
     Dosage: UNK UNK, UNKNOWN
     Route: 064
  4. L-THYROXIN [LEVOTHYROXINE SODIUM] [Concomitant]
     Indication: HYPOTHYROIDISM
     Dosage: UNK UNK, UNKNOWN
     Route: 064
  5. FOLSAEURE [Concomitant]
     Active Substance: FOLIC ACID
     Indication: PROPHYLAXIS OF NEURAL TUBE DEFECT
     Dosage: UNK UNK, UNKNOWN
     Route: 064
  6. FOLSAEURE [Concomitant]
     Active Substance: FOLIC ACID
     Indication: PROPHYLAXIS OF NEURAL TUBE DEFECT
     Dosage: UNK UNK, UNKNOWN
     Route: 064

REACTIONS (2)
  - Foetal exposure during pregnancy [Unknown]
  - Renal aplasia [Fatal]
